FAERS Safety Report 5650972-2 (Version None)
Quarter: 2008Q1

REPORT INFORMATION
  Report Type: 
  Country: None (occurrence: None)
  Receive Date: 20080131
  Receipt Date: 20071101
  Transmission Date: 20080703
  Serious: No
  Sender: FDA-Public Use
  Company Number: US200711000445

PATIENT
  Age: 52 Year
  Sex: Male
  Weight: 117.9 kg

DRUGS (2)
  1. BYETTA [Suspect]
     Indication: TYPE 2 DIABETES MELLITUS
     Dosage: 5 UG, 2/D, SUBCUTANEOUS
     Route: 058
     Dates: start: 20071029, end: 20071031
  2. GLUCOPHAGE /USA/ (METFORMIN HYDROCHLORIDE) [Concomitant]

REACTIONS (2)
  - HEADACHE [None]
  - VISION BLURRED [None]
